FAERS Safety Report 6010873-7 (Version None)
Quarter: 2008Q4

REPORT INFORMATION
  Report Type: 
  Country: None (occurrence: None)
  Receive Date: 20081218
  Receipt Date: 20081201
  Transmission Date: 20090506
  Serious: Yes (Hospitalization)
  Sender: FDA-Public Use
  Company Number: US-BAUSCH-2008BL004731

PATIENT
  Age: 91 Year
  Sex: Female

DRUGS (2)
  1. SOOTHE LONG LASTING (PRESERVATIVE FREE) [Suspect]
     Route: 047
     Dates: start: 20080701
  2. SOOTHE LONG LASTING (PRESERVATIVE FREE) [Suspect]
     Indication: KERATOCONJUNCTIVITIS SICCA
     Route: 047
     Dates: start: 20080701

REACTIONS (1)
  - STAPHYLOCOCCAL BACTERAEMIA [None]
